FAERS Safety Report 7691240 (Version 3)
Quarter: 2013Q4

REPORT INFORMATION
  Report Type: Spontaneous
  Country: US (occurrence: US)
  Receive Date: 20101203
  Receipt Date: 20131004
  Transmission Date: 20140711
  Serious: Yes (Other)
  Sender: FDA-Public Use
  Company Number: US-ROCHE-722624

PATIENT
  Age: 35 Year
  Sex: Female
  Weight: 63.5 kg

DRUGS (1)
  1. ACCUTANE [Suspect]
     Indication: ACNE
     Dosage: RECEIVED FOR SIX MONTHS
     Route: 065
     Dates: start: 1985, end: 1986

REACTIONS (6)
  - Gastrointestinal injury [Unknown]
  - Colitis ulcerative [Not Recovered/Not Resolved]
  - Pyoderma gangrenosum [Unknown]
  - Inflammatory bowel disease [Unknown]
  - Large intestine polyp [Unknown]
  - Arthritis [Unknown]
